FAERS Safety Report 13153966 (Version 1)
Quarter: 2017Q1

REPORT INFORMATION
  Report Type: Spontaneous
  Country: GB (occurrence: GB)
  Receive Date: 20170126
  Receipt Date: 20170126
  Transmission Date: 20170428
  Serious: Yes (Other)
  Sender: FDA-Public Use
  Company Number: GB-TEVA-732231ACC

PATIENT
  Age: 56 Year
  Sex: Female

DRUGS (5)
  1. MORPHINE SULFATE. [Suspect]
     Active Substance: MORPHINE SULFATE
     Indication: PAIN
     Dosage: UNK
  2. GABAPENTIN. [Suspect]
     Active Substance: GABAPENTIN
     Indication: MYOSITIS
  3. GABAPENTIN. [Suspect]
     Active Substance: GABAPENTIN
     Indication: PAIN
  4. GABAPENTIN. [Suspect]
     Active Substance: GABAPENTIN
     Indication: MUSCULAR WEAKNESS
  5. GABAPENTIN. [Suspect]
     Active Substance: GABAPENTIN
     Indication: INCLUSION BODY MYOSITIS
     Dosage: UNK

REACTIONS (16)
  - Confusional state [Unknown]
  - Feeling abnormal [Unknown]
  - Hallucination, auditory [Unknown]
  - Activities of daily living impaired [Unknown]
  - Brain injury [Unknown]
  - Dyskinesia [Unknown]
  - Abnormal behaviour [Unknown]
  - Mental impairment [Unknown]
  - Aggression [Unknown]
  - Emotional disorder [Unknown]
  - Mania [Unknown]
  - Hallucination [Unknown]
  - Apallic syndrome [Unknown]
  - Substance-induced psychotic disorder [Unknown]
  - Communication disorder [Unknown]
  - Mental status changes [Unknown]
